FAERS Safety Report 4552516-5 (Version None)
Quarter: 2005Q1

REPORT INFORMATION
  Report Type: 
  Country: None (occurrence: None)
  Receive Date: 20050114
  Receipt Date: 20040701
  Transmission Date: 20050727
  Serious: No
  Sender: FDA-Public Use
  Company Number: US-GLAXOSMITHKLINE-A0516756A

PATIENT
  Age: 52 Year
  Sex: Male
  Weight: 90.9 kg

DRUGS (1)
  1. IMITREX [Suspect]
     Indication: MIGRAINE
     Route: 058

REACTIONS (3)
  - INJECTION SITE IRRITATION [None]
  - INJECTION SITE PAIN [None]
  - PHARMACEUTICAL PRODUCT COMPLAINT [None]
